FAERS Safety Report 20757375 (Version 1)
Quarter: 2022Q2

REPORT INFORMATION
  Report Type: Report from Study
  Country: US (occurrence: US)
  Receive Date: 20220427
  Receipt Date: 20220427
  Transmission Date: 20220721
  Serious: Yes (Hospitalization, Other)
  Sender: FDA-Public Use
  Company Number: US-BAYER-2022A050519

PATIENT
  Age: 64 Year
  Sex: Female
  Weight: 76.19 kg

DRUGS (4)
  1. ADEMPAS [Suspect]
     Active Substance: RIOCIGUAT
     Indication: Pulmonary arterial hypertension
     Dosage: UNK
     Route: 048
     Dates: start: 20220405
  2. ADEMPAS [Suspect]
     Active Substance: RIOCIGUAT
     Indication: Pulmonary arterial hypertension
     Dosage: 1.5 MG, TID
     Route: 048
  3. OPSUMIT [Suspect]
     Active Substance: MACITENTAN
     Dosage: UNK
     Dates: end: 20220406
  4. UPTRAVI [Suspect]
     Active Substance: SELEXIPAG
     Dosage: 400 MCG , BID

REACTIONS (17)
  - Hypertension [None]
  - Brain operation [None]
  - Hospitalisation [None]
  - Weight increased [None]
  - Hypotension [None]
  - Feeling abnormal [None]
  - Aphonia [None]
  - Pain in jaw [Recovering/Resolving]
  - Myalgia [Recovering/Resolving]
  - Thyroid mass [None]
  - Dysphonia [None]
  - Musculoskeletal pain [None]
  - Headache [Recovering/Resolving]
  - Influenza like illness [Recovering/Resolving]
  - Diarrhoea [Recovering/Resolving]
  - Dizziness [Recovering/Resolving]
  - Decreased appetite [Recovering/Resolving]

NARRATIVE: CASE EVENT DATE: 20220223
